FAERS Safety Report 13602265 (Version 1)
Quarter: 2017Q2

REPORT INFORMATION
  Report Type: Spontaneous
  Country: IT (occurrence: IT)
  Receive Date: 20170601
  Receipt Date: 20170601
  Transmission Date: 20170830
  Serious: Yes (Other)
  Sender: FDA-Public Use
  Company Number: IT-PFIZER INC-2017237387

PATIENT
  Age: 49 Year
  Sex: Male
  Weight: 85 kg

DRUGS (1)
  1. CIPROFLOXACIN HCL [Suspect]
     Active Substance: CIPROFLOXACIN HYDROCHLORIDE
     Indication: GASTROENTERITIS
     Dosage: 500 MG, DAILY
     Route: 048
     Dates: start: 20130910, end: 20130916

REACTIONS (11)
  - Fibromyalgia [Unknown]
  - Tendonitis [Unknown]
  - Hypothalamo-pituitary disorder [Unknown]
  - Nausea [Unknown]
  - Toxicity to various agents [Unknown]
  - Neuropathy peripheral [Unknown]
  - Disturbance in attention [Unknown]
  - Chronic fatigue syndrome [Unknown]
  - Dyspepsia [Unknown]
  - Post viral fatigue syndrome [Unknown]
  - Weight decreased [Unknown]

NARRATIVE: CASE EVENT DATE: 20130925
